FAERS Safety Report 17681124 (Version 7)
Quarter: 2020Q3

REPORT INFORMATION
  Report Type: Spontaneous
  Country: US (occurrence: US)
  Receive Date: 20200417
  Receipt Date: 20200716
  Transmission Date: 20201102
  Serious: Yes (Hospitalization, Other)
  Sender: FDA-Public Use
  Company Number: US-UNITED THERAPEUTICS-UNT-2020-005817

PATIENT
  Age: 62 Year
  Sex: Female
  Weight: 64.85 kg

DRUGS (6)
  1. TADALAFIL. [Concomitant]
     Active Substance: TADALAFIL
     Indication: PRODUCT USED FOR UNKNOWN INDICATION
     Dosage: UNK
     Route: 065
  2. REMODULIN [Suspect]
     Active Substance: TREPROSTINIL
     Dosage: UNK, CONTINUING
     Route: 058
  3. LETAIRIS [Concomitant]
     Active Substance: AMBRISENTAN
     Indication: PRODUCT USED FOR UNKNOWN INDICATION
     Dosage: UNK
     Route: 065
  4. ELIQUIS [Concomitant]
     Active Substance: APIXABAN
     Indication: PRODUCT USED FOR UNKNOWN INDICATION
     Dosage: UNK
     Route: 065
  5. REMODULIN [Suspect]
     Active Substance: TREPROSTINIL
     Indication: PULMONARY ARTERIAL HYPERTENSION
     Dosage: UNK, CONTINUING
     Route: 058
     Dates: start: 20150727
  6. REMODULIN [Suspect]
     Active Substance: TREPROSTINIL
     Dosage: 0.061 ?G/KG, CONTINUING
     Route: 058

REACTIONS (19)
  - Pharyngitis streptococcal [Unknown]
  - Gastric disorder [Unknown]
  - Abdominal pain upper [Unknown]
  - Hypersensitivity [Unknown]
  - Back pain [Unknown]
  - Abdominal pain [Unknown]
  - Infusion site induration [Unknown]
  - Intentional medical device removal by patient [Unknown]
  - Diarrhoea [Unknown]
  - Infusion site pain [Unknown]
  - Infusion site mass [Unknown]
  - Nasal congestion [Unknown]
  - Infusion site infection [Unknown]
  - Bone pain [Unknown]
  - Memory impairment [Not Recovered/Not Resolved]
  - Infusion site erythema [Unknown]
  - Respiratory tract congestion [Unknown]
  - Weight decreased [Unknown]
  - Infusion site injury [Unknown]

NARRATIVE: CASE EVENT DATE: 2020
